FAERS Safety Report 23867125 (Version 2)
Quarter: 2024Q2

REPORT INFORMATION
  Report Type: Spontaneous
  Country: US (occurrence: US)
  Receive Date: 20240517
  Receipt Date: 20240521
  Transmission Date: 20240716
  Serious: No
  Sender: FDA-Public Use
  Company Number: US-BRISTOL-MYERS SQUIBB COMPANY-2024-076665

PATIENT
  Age: 67 Year
  Sex: Female
  Weight: 103.42 kg

DRUGS (1)
  1. REVLIMID [Suspect]
     Active Substance: LENALIDOMIDE
     Indication: Plasma cell myeloma
     Route: 048
     Dates: start: 20240426

REACTIONS (3)
  - Rash pruritic [Unknown]
  - Swollen tongue [Unknown]
  - Oral mucosal eruption [Recovered/Resolved]
